FAERS Safety Report 9179437 (Version 1)
Quarter: 2012Q4

REPORT INFORMATION
  Report Type: 
  Country: TR (occurrence: TR)
  Receive Date: 20121029
  Receipt Date: 20121029
  Transmission Date: 20130627
  Serious: Yes (Death)
  Sender: FDA-Public Use
  Company Number: TR-GILEAD-2012-0063487

PATIENT
  Age: 19 Year
  Sex: Female

DRUGS (3)
  1. VISTIDE [Suspect]
     Indication: OFF LABEL USE
     Dosage: 5 mg/kg, UNK
  2. VISTIDE [Suspect]
     Indication: PROGRESSIVE MULTIFOCAL LEUKOENCEPHALOPATHY
  3. METHYLPREDNISOLONE [Concomitant]
     Dosage: 1 g, QD

REACTIONS (1)
  - Drug ineffective for unapproved indication [Fatal]
